FAERS Safety Report 18622331 (Version 1)
Quarter: 2020Q4

REPORT INFORMATION
  Report Type: Spontaneous
  Country: US (occurrence: US)
  Receive Date: 20201216
  Receipt Date: 20201216
  Transmission Date: 20210114
  Serious: Yes (Other)
  Sender: FDA-Public Use
  Company Number: NVSC2020US331842

PATIENT

DRUGS (2)
  1. EVEROLIMUS. [Suspect]
     Active Substance: EVEROLIMUS
     Indication: HODGKIN^S DISEASE
     Dosage: UNK
     Route: 065
  2. VORINOSTAT [Suspect]
     Active Substance: VORINOSTAT
     Indication: HODGKIN^S DISEASE
     Dosage: UNK
     Route: 065

REACTIONS (2)
  - Thrombocytopenia [Unknown]
  - Product use in unapproved indication [Unknown]
